FAERS Safety Report 9393275 (Version 1)
Quarter: 2013Q3

REPORT INFORMATION
  Report Type: Spontaneous
  Country: ES (occurrence: ES)
  Receive Date: 20130710
  Receipt Date: 20130710
  Transmission Date: 20140515
  Serious: Yes (Hospitalization)
  Sender: FDA-Public Use
  Company Number: ES-PFIZER INC-2013201037

PATIENT
  Sex: Male

DRUGS (1)
  1. TRANKIMAZIN [Suspect]
     Indication: POOR QUALITY SLEEP

REACTIONS (3)
  - Off label use [Recovered/Resolved]
  - Suicide attempt [Recovered/Resolved]
  - Depression [Recovered/Resolved]
